FAERS Safety Report 7928306-X (Version None)
Quarter: 2011Q4

REPORT INFORMATION
  Report Type: 
  Country: None (occurrence: None)
  Receive Date: 20111118
  Receipt Date: 20111114
  Transmission Date: 20120403
  Serious: No
  Sender: FDA-Public Use
  Company Number: US-PFIZER INC-2011278389

PATIENT
  Sex: Male

DRUGS (3)
  1. LETAIRIS [Suspect]
     Dosage: 10 MG, UNK
     Route: 048
     Dates: start: 20071115
  2. TYVASO [Suspect]
     Route: 055
  3. SILDENAFIL CITRATE [Suspect]
     Dosage: MG; UNK

REACTIONS (1)
  - FLUSHING [None]
